FAERS Safety Report 13888287 (Version 2)
Quarter: 2017Q3

REPORT INFORMATION
  Report Type: Report from Study
  Country: LB (occurrence: LB)
  Receive Date: 20170821
  Receipt Date: 20170918
  Transmission Date: 20171127
  Serious: Yes (Hospitalization, Other)
  Sender: FDA-Public Use
  Company Number: PHHY2017LB122754

PATIENT
  Sex: Male

DRUGS (1)
  1. TASIGNA [Suspect]
     Active Substance: NILOTINIB
     Indication: PRODUCT USED FOR UNKNOWN INDICATION
     Dosage: 600 MG, UNK
     Route: 048
     Dates: start: 2014, end: 201709

REACTIONS (6)
  - Decreased appetite [Unknown]
  - Therapeutic response decreased [Unknown]
  - Constipation [Recovered/Resolved]
  - Haemorrhoids [Recovered/Resolved]
  - Anorectal discomfort [Unknown]
  - Rash [Recovered/Resolved]
